FAERS Safety Report 7469369-8 (Version None)
Quarter: 2011Q2

REPORT INFORMATION
  Report Type: 
  Country: None (occurrence: None)
  Receive Date: 20110429
  Receipt Date: 20110419
  Transmission Date: 20111010
  Serious: Yes (Other)
  Sender: FDA-Public Use
  Company Number: 2011AL000026

PATIENT
  Age: 50 Year
  Sex: Female

DRUGS (8)
  1. VITAMIN B-12 [Concomitant]
  2. SIMVASTATIN [Concomitant]
  3. ZOLPIDEM [Concomitant]
  4. LEVOTHYROXINE SODIUM [Concomitant]
  5. CITALOPRAM HYDROBROMIDE [Concomitant]
  6. LORATADINE [Concomitant]
  7. FOLOTYN [Suspect]
     Indication: MYCOSIS FUNGOIDES
     Dosage: 30 MG, QW, IV
     Route: 042
     Dates: start: 20110412
  8. HYDROXYZINE [Concomitant]

REACTIONS (2)
  - WOUND SECRETION [None]
  - SKIN DISORDER [None]
